FAERS Safety Report 5073066-6 (Version None)
Quarter: 2006Q3

REPORT INFORMATION
  Report Type: 
  Country: None (occurrence: None)
  Receive Date: 20060802
  Receipt Date: 20060712
  Transmission Date: 20061208
  Serious: Yes (Other)
  Sender: FDA-Public Use
  Company Number: US200607001952

PATIENT
  Age: 60 Year
  Sex: Female

DRUGS (2)
  1. CYMBALTA [Suspect]
     Indication: DEPRESSION
     Dosage: 30 MG, DAILY (1/D), UNK
     Dates: start: 20050201, end: 20060301
  2. CLONAZEPAM [Concomitant]

REACTIONS (2)
  - FEELING ABNORMAL [None]
  - GASTRIC BANDING [None]
